FAERS Safety Report 13869101 (Version 1)
Quarter: 2017Q3

REPORT INFORMATION
  Report Type: Spontaneous
  Country: RU (occurrence: RU)
  Receive Date: 20170815
  Receipt Date: 20170815
  Transmission Date: 20171127
  Serious: Yes (Other)
  Sender: FDA-Public Use
  Company Number: RU-B. BRAUN MEDICAL INC.-2024622

PATIENT
  Age: 16 Year
  Sex: Female

DRUGS (2)
  1. SODIUM CHLORIDE. [Suspect]
     Active Substance: SODIUM CHLORIDE
     Route: 042
  2. THIOCTIC ACID [Concomitant]
     Active Substance: THIOCTIC ACID
     Route: 042

REACTIONS (2)
  - Nausea [Recovered/Resolved]
  - Dizziness [Recovered/Resolved]
